FAERS Safety Report 13461119 (Version 1)
Quarter: 2017Q2

REPORT INFORMATION
  Report Type: Spontaneous
  Country: US (occurrence: US)
  Receive Date: 20170419
  Receipt Date: 20170419
  Transmission Date: 20170830
  Serious: Yes (Death, Hospitalization)
  Sender: FDA-Public Use
  Company Number: None

PATIENT
  Age: 61 Year
  Sex: Female
  Weight: 55 kg

DRUGS (8)
  1. ELIQUIS [Suspect]
     Active Substance: APIXABAN
     Indication: DEEP VEIN THROMBOSIS
     Route: 048
     Dates: start: 20161222, end: 20170109
  2. METAMUCIL [Concomitant]
     Active Substance: PLANTAGO SEED
  3. PERCOCET [Concomitant]
     Active Substance: ACETAMINOPHEN\OXYCODONE HYDROCHLORIDE
  4. NORVASC [Concomitant]
     Active Substance: AMLODIPINE BESYLATE
  5. TYLENOL [Concomitant]
     Active Substance: ACETAMINOPHEN
  6. PHENERGAN [Concomitant]
     Active Substance: PROMETHAZINE HYDROCHLORIDE
  7. FENTANYL. [Concomitant]
     Active Substance: FENTANYL
  8. OMPERAZOLE [Concomitant]
     Active Substance: OMEPRAZOLE

REACTIONS (10)
  - Depressed level of consciousness [None]
  - Hypophagia [None]
  - Metastases to central nervous system [None]
  - Diarrhoea [None]
  - Enteritis [None]
  - Pyrexia [None]
  - General physical health deterioration [None]
  - Abdominal pain [None]
  - Asthenia [None]
  - Sepsis [None]

NARRATIVE: CASE EVENT DATE: 20170114
